FAERS Safety Report 5306844-6 (Version None)
Quarter: 2007Q2

REPORT INFORMATION
  Report Type: 
  Country: None (occurrence: None)
  Receive Date: 20070420
  Receipt Date: 20070420
  Transmission Date: 20071010
  Serious: Yes (Hospitalization)
  Sender: FDA-Public Use
  Company Number: None

PATIENT
  Age: 82 Year
  Sex: Female
  Weight: 65.3 kg

DRUGS (13)
  1. CARBOPLATIN [Suspect]
     Indication: BREAST CANCER METASTATIC
     Dosage: IV 2 AUC
     Dates: start: 20070404
  2. CARBOPLATIN [Suspect]
     Indication: BREAST CANCER METASTATIC
     Dosage: IV 2 AUC
     Dates: start: 20070411
  3. PACLITAXEL [Suspect]
     Indication: BREAST CANCER METASTATIC
     Dosage: 60MG M2
     Dates: start: 20070404
  4. PACLITAXEL [Suspect]
     Indication: BREAST CANCER METASTATIC
     Dosage: 60MG M2
     Dates: start: 20070411
  5. LAPATINIB (TYKERB) [Suspect]
     Indication: BREAST CANCER METASTATIC
     Dosage: 1000 MG PO QD
     Route: 048
     Dates: start: 20070404, end: 20070411
  6. LEXAPRO [Concomitant]
  7. EVISTA [Concomitant]
  8. HYDROCODONE [Concomitant]
  9. DETROL LA [Concomitant]
  10. SIMVASTATIN [Concomitant]
  11. ASPIRIN [Concomitant]
  12. VITAMINS [Concomitant]
  13. GLUCOSAMINE [Concomitant]

REACTIONS (8)
  - ANAEMIA [None]
  - BLOOD PRESSURE DIASTOLIC DECREASED [None]
  - BRONCHITIS [None]
  - COUGH [None]
  - DIARRHOEA [None]
  - ILEUS [None]
  - NEUTROPENIA [None]
  - REGURGITATION [None]
